FAERS Safety Report 8465692-9 (Version None)
Quarter: 2012Q2

REPORT INFORMATION
  Report Type: 
  Country: None (occurrence: None)
  Receive Date: 20120620
  Receipt Date: 20120620
  Transmission Date: 20120825
  Serious: Yes (Life-Threatening, Disabling)
  Sender: FDA-Public Use
  Company Number: None

PATIENT
  Age: 37 Year
  Sex: Female

DRUGS (1)
  1. MERIDIA [Suspect]
     Dosage: 10 MG

REACTIONS (2)
  - IMPAIRED WORK ABILITY [None]
  - CEREBROVASCULAR ACCIDENT [None]
